FAERS Safety Report 9228787 (Version 3)
Quarter: 2013Q2

REPORT INFORMATION
  Report Type: Spontaneous
  Country: BR (occurrence: BR)
  Receive Date: 20130412
  Receipt Date: 20130619
  Transmission Date: 20140414
  Serious: Yes (Other)
  Sender: FDA-Public Use
  Company Number: PHHY2013BR033624

PATIENT
  Sex: Female

DRUGS (3)
  1. RITALINA [Suspect]
     Indication: ATTENTION DEFICIT/HYPERACTIVITY DISORDER
     Dosage: 3 DF, DAILY (3 DF TO 5 DF DAILY)
     Route: 048
  2. RITALIN LA [Suspect]
     Indication: ATTENTION DEFICIT/HYPERACTIVITY DISORDER
     Dosage: 1 DF, DAILY
     Route: 048
  3. RIVOTRIL [Concomitant]
     Indication: ANXIETY
     Dosage: UNK UKN, UNK
     Route: 048

REACTIONS (5)
  - Dissociation [Recovered/Resolved]
  - Depression [Recovered/Resolved]
  - Drug withdrawal syndrome [Unknown]
  - Insomnia [Recovered/Resolved]
  - Disturbance in attention [Unknown]
